FAERS Safety Report 6329540-5 (Version None)
Quarter: 2009Q3

REPORT INFORMATION
  Report Type: 
  Country: None (occurrence: None)
  Receive Date: 20090825
  Receipt Date: 20090825
  Transmission Date: 20100115
  Serious: Yes (Hospitalization)
  Sender: FDA-Public Use
  Company Number: None

PATIENT
  Age: 60 Year
  Sex: Male
  Weight: 84.1876 kg

DRUGS (2)
  1. SUCCINYLCHOLINE [Suspect]
     Indication: SURGERY
     Dates: start: 20090701, end: 20090701
  2. DESFLURANE [Suspect]
     Indication: SURGERY
     Dates: start: 20090701, end: 20090701

REACTIONS (1)
  - HYPERTHERMIA MALIGNANT [None]
